FAERS Safety Report 18934954 (Version 1)
Quarter: 2021Q1

REPORT INFORMATION
  Report Type: Spontaneous
  Country: US (occurrence: US)
  Receive Date: 20210224
  Receipt Date: 20210224
  Transmission Date: 20210420
  Serious: Yes (Hospitalization, Other)
  Sender: FDA-Public Use
  Company Number: US-ALVOGEN-2021-ALVOGEN-116591

PATIENT
  Age: 2 Year
  Sex: Female

DRUGS (6)
  1. PENTOBARBITAL SODIUM. [Concomitant]
     Active Substance: PENTOBARBITAL SODIUM
     Indication: STATUS EPILEPTICUS
     Dosage: INFUSION
  2. LEVETIRACETAM. [Suspect]
     Active Substance: LEVETIRACETAM
     Indication: EPILEPSY
     Dosage: 100 MG/KG/DAY
  3. VALPROIC ACID. [Concomitant]
     Active Substance: VALPROIC ACID
     Indication: STATUS EPILEPTICUS
  4. MIDAZOLAM. [Concomitant]
     Active Substance: MIDAZOLAM
     Indication: STATUS EPILEPTICUS
  5. CLOBAZAM. [Concomitant]
     Active Substance: CLOBAZAM
     Indication: STATUS EPILEPTICUS
  6. LORAZEPAM. [Concomitant]
     Active Substance: LORAZEPAM
     Indication: STATUS EPILEPTICUS

REACTIONS (4)
  - Status epilepticus [Recovered/Resolved]
  - Seizure [Recovered/Resolved]
  - Paradoxical drug reaction [Recovered/Resolved]
  - Drug resistance [Recovered/Resolved]
